FAERS Safety Report 24344887 (Version 1)
Quarter: 2024Q3

REPORT INFORMATION
  Report Type: Spontaneous
  Country: AU (occurrence: AU)
  Receive Date: 20240920
  Receipt Date: 20240920
  Transmission Date: 20241017
  Serious: Yes (Hospitalization)
  Sender: ABBVIE
  Company Number: AU-ABBVIE-5926156

PATIENT

DRUGS (5)
  1. ADALIMUMAB [Suspect]
     Active Substance: ADALIMUMAB
     Indication: Anorectal disorder
     Route: 058
     Dates: start: 2017, end: 2023
  2. ADALIMUMAB [Suspect]
     Active Substance: ADALIMUMAB
     Route: 058
     Dates: start: 2015
  3. AZATHIOPRINE [Concomitant]
     Active Substance: AZATHIOPRINE
     Indication: Product used for unknown indication
     Dates: start: 2014
  4. PREDNISOLONE [Concomitant]
     Active Substance: PREDNISOLONE
     Indication: Product used for unknown indication
  5. CIPROFLOXACIN [Concomitant]
     Active Substance: CIPROFLOXACIN
     Indication: Product used for unknown indication

REACTIONS (15)
  - Anal fistula [Unknown]
  - Drug ineffective [Unknown]
  - Sepsis [Unknown]
  - Pain [Unknown]
  - Swelling [Unknown]
  - Purulent discharge [Recovered/Resolved]
  - Anal abscess [Unknown]
  - Abnormal faeces [Unknown]
  - Excessive granulation tissue [Unknown]
  - Tenderness [Unknown]
  - Anal erythema [Recovered/Resolved]
  - Induration [Recovered/Resolved]
  - Rectal tenesmus [Unknown]
  - Device dislocation [Unknown]
  - Medical device site discomfort [Unknown]

NARRATIVE: CASE EVENT DATE: 20170101
